FAERS Safety Report 6049396-8 (Version None)
Quarter: 2009Q1

REPORT INFORMATION
  Report Type: 
  Country: None (occurrence: None)
  Receive Date: 20090123
  Receipt Date: 20090113
  Transmission Date: 20090719
  Serious: Yes (Life-Threatening, Other)
  Sender: FDA-Public Use
  Company Number: JP-GENENTECH-271651

PATIENT
  Age: 59 Year
  Sex: Male

DRUGS (4)
  1. AVASTIN [Suspect]
     Indication: LARGE INTESTINE CARCINOMA
     Dosage: 375 MG/KG, Q2W
     Route: 041
     Dates: end: 20081106
  2. ELPLAT [Concomitant]
     Indication: DRUG USE FOR UNKNOWN INDICATION
     Dosage: UNK
     Dates: end: 20081106
  3. FLUOROURACIL [Concomitant]
     Indication: DRUG USE FOR UNKNOWN INDICATION
     Dosage: UNK
  4. CALCIUM LEVOFOLINATE [Concomitant]
     Indication: DRUG USE FOR UNKNOWN INDICATION
     Dosage: UNK

REACTIONS (4)
  - ARTERIAL SPASM [None]
  - ARTERIOSPASM CORONARY [None]
  - CARDIO-RESPIRATORY ARREST [None]
  - SHOCK [None]
